FAERS Safety Report 18679476 (Version 1)
Quarter: 2020Q4

REPORT INFORMATION
  Report Type: Report from Study
  Country: JP (occurrence: JP)
  Receive Date: 20201230
  Receipt Date: 20201230
  Transmission Date: 20210114
  Serious: Yes (Other)
  Sender: FDA-Public Use
  Company Number: JP-ACCORD-212362

PATIENT

DRUGS (2)
  1. TACROLIMUS. [Suspect]
     Active Substance: TACROLIMUS
     Indication: GRAFT VERSUS HOST DISEASE
     Dosage: 6 MG/M2 DAY 1 3 MG/M2 DAYS 3 AND 6, INTRAVENOUSLY)
  2. METHOTREXATE. [Suspect]
     Active Substance: METHOTREXATE
     Indication: GRAFT VERSUS HOST DISEASE
     Dosage: 6 MG/M2 DAY 1; 3 MG/M2 DAYS 3 AND 6, INTRAVENOUSLY)

REACTIONS (1)
  - Oropharyngeal pain [Unknown]
